FAERS Safety Report 18281934 (Version 3)
Quarter: 2022Q3

REPORT INFORMATION
  Report Type: Spontaneous
  Country: US (occurrence: US)
  Receive Date: 20200918
  Receipt Date: 20220828
  Transmission Date: 20221027
  Serious: Yes (Death, Hospitalization, Disabling, Other)
  Sender: FDA-Public Use
  Company Number: US-SA-2020SA251900

PATIENT

DRUGS (2)
  1. ZANTAC [Suspect]
     Active Substance: RANITIDINE HYDROCHLORIDE
     Dosage: UNK
     Route: 048
     Dates: start: 20140301, end: 20160601
  2. RANITIDINE HYDROCHLORIDE [Suspect]
     Active Substance: RANITIDINE HYDROCHLORIDE
     Dosage: UNK
     Dates: start: 198701, end: 201703

REACTIONS (7)
  - Hepatic cancer [Fatal]
  - Disability [Unknown]
  - Hospitalisation [Unknown]
  - Pain [Unknown]
  - Deformity [Unknown]
  - Anxiety [Unknown]
  - Anhedonia [Unknown]

NARRATIVE: CASE EVENT DATE: 20140625
